FAERS Safety Report 12615079 (Version 2)
Quarter: 2018Q4

REPORT INFORMATION
  Report Type: Spontaneous
  Country: SE (occurrence: SE)
  Receive Date: 20160802
  Receipt Date: 20181210
  Transmission Date: 20190204
  Serious: Yes (Death, Life-Threatening, Other)
  Sender: FDA-Public Use
  Company Number: SE-ALLERGAN-1664383US

PATIENT
  Age: 90 Year
  Sex: Female

DRUGS (1)
  1. MORPHINE SULFATE UNK [Suspect]
     Active Substance: MORPHINE SULFATE
     Indication: POSTOPERATIVE CARE
     Dosage: UNK
     Route: 065

REACTIONS (6)
  - Abdominal abscess [Unknown]
  - Gastrointestinal perforation [Unknown]
  - Sepsis [Fatal]
  - Multiple organ dysfunction syndrome [Unknown]
  - Faecaloma [Unknown]
  - Intestinal ischaemia [Unknown]
